FAERS Safety Report 4407813-0 (Version None)
Quarter: 2004Q3

REPORT INFORMATION
  Report Type: 
  Country: None (occurrence: None)
  Receive Date: 20040721
  Receipt Date: 20040708
  Transmission Date: 20050211
  Serious: Yes (Hospitalization, Other)
  Sender: FDA-Public Use
  Company Number: AU-JNJFOC-20040501168

PATIENT
  Age: 44 Year
  Sex: Female
  Weight: 110 kg

DRUGS (4)
  1. RISPERDAL [Suspect]
     Indication: PSYCHOTIC DISORDER
     Dosage: SEE IMAGE
     Route: 048
     Dates: start: 20010730
  2. LITHIUM CARBONATE [Suspect]
     Indication: HYPOMANIA
     Dosage: 1000 MG, IN 1 DAY, ORAL
     Route: 048
     Dates: start: 20040210
  3. ANTITRIPTYLINE (AMITRIPTYLINE) [Concomitant]
  4. METFORMIN HCL [Concomitant]

REACTIONS (8)
  - ATAXIA [None]
  - CSF PRESSURE INCREASED [None]
  - HEADACHE [None]
  - HYPOMANIA [None]
  - HYPOTHYROIDISM [None]
  - INTRACRANIAL PRESSURE INCREASED [None]
  - PAPILLOEDEMA [None]
  - RETINAL HAEMORRHAGE [None]
